FAERS Safety Report 4284983-9 (Version None)
Quarter: 2004Q1

REPORT INFORMATION
  Report Type: 
  Country: None (occurrence: None)
  Receive Date: 20040202
  Receipt Date: 20040120
  Transmission Date: 20041129
  Serious: Yes (Other)
  Sender: FDA-Public Use
  Company Number: 200410752GDDC

PATIENT
  Age: 3 Year
  Sex: Male

DRUGS (1)
  1. FEXOFENADINE HCL [Suspect]
     Dosage: 120 MG QD

REACTIONS (1)
  - ELECTROCARDIOGRAM QT PROLONGED [None]
